FAERS Safety Report 9352363 (Version 3)
Quarter: 2013Q3

REPORT INFORMATION
  Report Type: Spontaneous
  Country: PH (occurrence: PH)
  Receive Date: 20130617
  Receipt Date: 20130731
  Transmission Date: 20140515
  Serious: Yes (Death, Life-Threatening, Other)
  Sender: FDA-Public Use
  Company Number: PH-009507513-1306PHL006650

PATIENT
  Age: 65 Year
  Sex: Female

DRUGS (2)
  1. JANUVIA [Suspect]
     Dosage: ONCE A DAY
     Route: 048
  2. INSULIN [Concomitant]

REACTIONS (1)
  - Renal failure chronic [Fatal]
